FAERS Safety Report 11463202 (Version 3)
Quarter: 2016Q1

REPORT INFORMATION
  Report Type: Spontaneous
  Country: IT (occurrence: IT)
  Receive Date: 20150905
  Receipt Date: 20160211
  Transmission Date: 20160525
  Serious: Yes (Life-Threatening, Other)
  Sender: FDA-Public Use
  Company Number: IT-BRISTOL-MYERS SQUIBB COMPANY-BMS-2015-057465

PATIENT
  Age: 78 Year
  Sex: Female
  Weight: 40 kg

DRUGS (7)
  1. COUMADIN [Suspect]
     Active Substance: WARFARIN SODIUM
     Indication: PRODUCT USED FOR UNKNOWN INDICATION
     Dosage: 1 UNIT, QD
     Route: 048
     Dates: start: 20150107, end: 20150308
  2. COMPENDIUM [Concomitant]
     Active Substance: BROMAZEPAM
     Indication: PRODUCT USED FOR UNKNOWN INDICATION
     Route: 048
  3. SOTALOL HYDROCHLORIDE. [Concomitant]
     Active Substance: SOTALOL HYDROCHLORIDE
     Indication: SUPRAVENTRICULAR TACHYCARDIA
     Dosage: 40 MG, UNK
     Route: 048
  4. LASIX [Concomitant]
     Active Substance: FUROSEMIDE
     Indication: HYPERTENSION
     Route: 065
  5. PANTORC [Concomitant]
     Active Substance: PANTOPRAZOLE SODIUM
     Indication: GASTRITIS
     Dosage: 1 UNIT, UNK
     Route: 048
  6. CLEXANE [Suspect]
     Active Substance: ENOXAPARIN SODIUM
     Indication: PRODUCT USED FOR UNKNOWN INDICATION
     Dosage: 2 UNIT, QD
     Route: 065
     Dates: start: 20150130, end: 20150308
  7. ROCALTROL CHUGAI [Concomitant]
     Indication: OSTEOPOROSIS
     Dosage: 1 UNIT, UNK
     Route: 048

REACTIONS (7)
  - International normalised ratio increased [Unknown]
  - Muscle haemorrhage [Recovering/Resolving]
  - Retroperitoneal haematoma [Recovering/Resolving]
  - Off label use [Unknown]
  - Ascites [Recovering/Resolving]
  - Transfusion [Unknown]
  - Medication error [Unknown]

NARRATIVE: CASE EVENT DATE: 20150308
